FAERS Safety Report 5599160-9 (Version None)
Quarter: 2008Q1

REPORT INFORMATION
  Report Type: 
  Country: None (occurrence: None)
  Receive Date: 20080122
  Receipt Date: 20080111
  Transmission Date: 20080703
  Serious: Yes (Death, Other)
  Sender: FDA-Public Use
  Company Number: GB-BRISTOL-MYERS SQUIBB COMPANY-14039374

PATIENT
  Sex: Male

DRUGS (1)
  1. ABILIFY [Suspect]
     Indication: PSYCHOTIC DISORDER
     Route: 048

REACTIONS (3)
  - DEATH [None]
  - EXTRAPYRAMIDAL DISORDER [None]
  - NEUROLEPTIC MALIGNANT SYNDROME [None]
